FAERS Safety Report 20702117 (Version 1)
Quarter: 2022Q2

REPORT INFORMATION
  Report Type: Spontaneous
  Country: US (occurrence: US)
  Receive Date: 20220412
  Receipt Date: 20220412
  Transmission Date: 20220721
  Serious: Yes (Other)
  Sender: FDA-Public Use
  Company Number: US-TEVA-2022-US-2025760

PATIENT
  Sex: Male

DRUGS (1)
  1. FINASTERIDE [Suspect]
     Active Substance: FINASTERIDE
     Indication: Benign prostatic hyperplasia
     Route: 065

REACTIONS (4)
  - Erectile dysfunction [Unknown]
  - Libido decreased [Unknown]
  - Hypogonadism [Unknown]
  - Androgen deficiency [Unknown]
